FAERS Safety Report 16427527 (Version 10)
Quarter: 2022Q1

REPORT INFORMATION
  Report Type: Report from Study
  Country: CA (occurrence: CA)
  Receive Date: 20190613
  Receipt Date: 20220216
  Transmission Date: 20220423
  Serious: Yes (Other)
  Sender: FDA-Public Use
  Company Number: PHHY2018CA141424

PATIENT
  Age: 62 Year
  Sex: Female

DRUGS (5)
  1. SANDOSTATIN LAR DEPOT [Suspect]
     Active Substance: OCTREOTIDE ACETATE
     Indication: Carcinoid tumour
     Dosage: 30 MG, QMO (EVERY 4 WEEKS)
     Route: 030
     Dates: start: 20180925
  2. SANDOSTATIN LAR DEPOT [Suspect]
     Active Substance: OCTREOTIDE ACETATE
     Dosage: 30 MG, QMO
     Route: 030
     Dates: start: 20181121
  3. SANDOSTATIN LAR DEPOT [Suspect]
     Active Substance: OCTREOTIDE ACETATE
     Dosage: 30 MG, QMO
     Route: 030
     Dates: start: 20181220
  4. SANDOSTATIN LAR DEPOT [Suspect]
     Active Substance: OCTREOTIDE ACETATE
     Dosage: 30 MG, QMO
     Route: 030
     Dates: start: 201905
  5. VITAMIN B12 [Concomitant]
     Active Substance: CYANOCOBALAMIN
     Indication: Product used for unknown indication
     Dosage: UNK UNK, QD (STRENGTH 5000 OTHER)
     Route: 048
     Dates: start: 20210813

REACTIONS (7)
  - Tooth abscess [Unknown]
  - Nephrolithiasis [Unknown]
  - Blood pressure increased [Unknown]
  - Anxiety [Unknown]
  - Muscle spasms [Unknown]
  - Hypoglycaemia [Unknown]
  - Needle issue [Unknown]

NARRATIVE: CASE EVENT DATE: 20181025
